FAERS Safety Report 10781219 (Version 1)
Quarter: 2015Q1

REPORT INFORMATION
  Report Type: Spontaneous
  Country: US (occurrence: US)
  Receive Date: 20150210
  Receipt Date: 20150210
  Transmission Date: 20150721
  Serious: No
  Sender: FDA-Public Use
  Company Number: US-GLAXOSMITHKLINE-A1062834A

PATIENT

DRUGS (3)
  1. CHOLESTEROL [Concomitant]
     Active Substance: CHOLESTEROL
  2. ANTIHYPERTENSIVE [Concomitant]
     Active Substance: UNSPECIFIED INGREDIENT
  3. NICODERM CQ [Suspect]
     Active Substance: NICOTINE
     Indication: EX-TOBACCO USER
     Dates: start: 20140221

REACTIONS (1)
  - Nausea [Not Recovered/Not Resolved]

NARRATIVE: CASE EVENT DATE: 20140226
